FAERS Safety Report 6241183-0 (Version None)
Quarter: 2009Q2

REPORT INFORMATION
  Report Type: 
  Country: None (occurrence: None)
  Receive Date: 20090619
  Receipt Date: 20090619
  Transmission Date: 20091009
  Serious: Yes (Other)
  Sender: FDA-Public Use
  Company Number: None

PATIENT
  Age: 34 Year
  Sex: Female
  Weight: 63.5036 kg

DRUGS (2)
  1. ZICAM MATRIXX [Suspect]
     Indication: NASAL CONGESTION
     Dosage: SWAB 2 DAILY NASAL
     Route: 045
     Dates: start: 20090526, end: 20090528
  2. ZICAM MATRIXX [Suspect]
     Indication: OROPHARYNGEAL PAIN
     Dosage: SWAB 2 DAILY NASAL
     Route: 045
     Dates: start: 20090526, end: 20090528

REACTIONS (2)
  - AGEUSIA [None]
  - ANOSMIA [None]
